FAERS Safety Report 7285260-4 (Version None)
Quarter: 2011Q1

REPORT INFORMATION
  Report Type: 
  Country: None (occurrence: None)
  Receive Date: 20110210
  Receipt Date: 20110131
  Transmission Date: 20110831
  Serious: Yes (Hospitalization)
  Sender: FDA-Public Use
  Company Number: AR-JNJFOC-20110200721

PATIENT
  Age: 42 Year
  Sex: Female

DRUGS (4)
  1. RALTEGRAVIR [Concomitant]
     Indication: HIV INFECTION
     Route: 065
  2. TDF [Concomitant]
     Route: 065
  3. PREZISTA [Suspect]
     Indication: HIV INFECTION
     Route: 002
  4. FTC [Concomitant]
     Route: 065

REACTIONS (1)
  - ACUTE HEPATIC FAILURE [None]
